FAERS Safety Report 13556941 (Version 1)
Quarter: 2017Q2

REPORT INFORMATION
  Report Type: Spontaneous
  Country: US (occurrence: US)
  Receive Date: 20170517
  Receipt Date: 20170517
  Transmission Date: 20170830
  Serious: Yes (Life-Threatening, Hospitalization, Disabling, Other)
  Sender: FDA-Public Use
  Company Number: None

PATIENT
  Age: 47 Year
  Sex: Male
  Weight: 81.1 kg

DRUGS (4)
  1. TRIUMEQ [Suspect]
     Active Substance: ABACAVIR SULFATE\DOLUTEGRAVIR SODIUM\LAMIVUDINE
     Indication: HIV INFECTION
     Route: 048
  2. XANAX [Concomitant]
     Active Substance: ALPRAZOLAM
  3. ALUMINUM CHLORIDE (DRYSOL) [Concomitant]
  4. LORATADINE (CLARITIN) [Concomitant]

REACTIONS (6)
  - Ventricular fibrillation [None]
  - Cardiac arrest [None]
  - Left ventricular dilatation [None]
  - Acute kidney injury [None]
  - Cardiomyopathy [None]
  - Respiratory failure [None]

NARRATIVE: CASE EVENT DATE: 20170415
